FAERS Safety Report 7943053-6 (Version None)
Quarter: 2011Q4

REPORT INFORMATION
  Report Type: 
  Country: None (occurrence: None)
  Receive Date: 20111128
  Receipt Date: 20111121
  Transmission Date: 20120403
  Serious: Yes (Life-Threatening, Hospitalization, Other)
  Sender: FDA-Public Use
  Company Number: AU-ASTRAZENECA-2011SE65517

PATIENT
  Age: 0 Day
  Sex: Female
  Weight: 3.6 kg

DRUGS (3)
  1. SEROQUEL [Suspect]
     Route: 064
  2. BLACKMORES [Concomitant]
     Indication: VITAMIN SUPPLEMENTATION
     Route: 064
  3. SEROQUEL [Suspect]
     Indication: PSYCHOTIC DISORDER
     Route: 064

REACTIONS (1)
  - RESPIRATORY DISTRESS [None]
